FAERS Safety Report 7526899-8 (Version None)
Quarter: 2011Q2

REPORT INFORMATION
  Report Type: 
  Country: None (occurrence: None)
  Receive Date: 20110606
  Receipt Date: 20040305
  Transmission Date: 20111010
  Serious: Yes (Hospitalization)
  Sender: FDA-Public Use
  Company Number: PHHO2004CA03500

PATIENT
  Sex: Male

DRUGS (1)
  1. CLOZARIL [Suspect]
     Indication: SCHIZOPHRENIA
     Dates: start: 20031217

REACTIONS (3)
  - GASTROINTESTINAL CARCINOMA [None]
  - WHITE BLOOD CELL COUNT INCREASED [None]
  - LUNG NEOPLASM MALIGNANT [None]
